FAERS Safety Report 5898200-7 (Version None)
Quarter: 2008Q3

REPORT INFORMATION
  Report Type: 
  Country: None (occurrence: None)
  Receive Date: 20080925
  Receipt Date: 20080912
  Transmission Date: 20090109
  Serious: Yes (Other)
  Sender: FDA-Public Use
  Company Number: FR-ELI_LILLY_AND_COMPANY-FR200809002740

PATIENT
  Sex: Female

DRUGS (3)
  1. GEMZAR [Suspect]
     Indication: BREAST CANCER METASTATIC
     Dosage: 1 MG/M2 OR 1.8MG DEPENDING ON THE CYCLE, EVERY TWO WEEKS.
     Route: 042
  2. ZOMETA [Concomitant]
     Indication: BREAST CANCER METASTATIC
     Dosage: 4 MG DEPENDING ON CYCLE
     Route: 042
  3. ELOXATIN [Concomitant]
     Indication: BREAST CANCER METASTATIC

REACTIONS (2)
  - ATAXIA [None]
  - VISION BLURRED [None]
